FAERS Safety Report 5397741-9 (Version None)
Quarter: 2007Q3

REPORT INFORMATION
  Report Type: 
  Country: None (occurrence: None)
  Receive Date: 20070726
  Receipt Date: 20070720
  Transmission Date: 20080115
  Serious: Yes (Other)
  Sender: FDA-Public Use
  Company Number: A0651294A

PATIENT
  Age: 25 Year
  Sex: Male
  Weight: 65.9 kg

DRUGS (5)
  1. LAMICTAL [Suspect]
     Indication: DRUG USE FOR UNKNOWN INDICATION
     Dosage: 150MG TWICE PER DAY
     Route: 048
     Dates: start: 20031104
  2. VIAGRA [Suspect]
     Indication: DRUG USE FOR UNKNOWN INDICATION
     Route: 048
     Dates: start: 20070503, end: 20070503
  3. ZONISAMIDE [Concomitant]
     Indication: EPILEPSY
     Dosage: 200MG TWICE PER DAY
     Route: 048
     Dates: start: 20050427
  4. CLONAZEPAM [Concomitant]
     Indication: ANXIETY
     Route: 048
     Dates: start: 20040101
  5. METOCLOPRAMIDE [Concomitant]
     Indication: NAUSEA
     Dosage: 10MG AS REQUIRED
     Route: 048

REACTIONS (5)
  - ANTICONVULSANT DRUG LEVEL DECREASED [None]
  - BLOOD BICARBONATE DECREASED [None]
  - CONVULSION [None]
  - DRUG INTERACTION [None]
  - TREATMENT NONCOMPLIANCE [None]
